FAERS Safety Report 23271965 (Version 2)
Quarter: 2023Q4

REPORT INFORMATION
  Report Type: Spontaneous
  Country: JP (occurrence: JP)
  Receive Date: 20231207
  Receipt Date: 20231221
  Transmission Date: 20240110
  Serious: Yes (Death, Other)
  Sender: FDA-Public Use
  Company Number: JP-TAKEDA-2023TJP016199

PATIENT
  Age: 71 Year
  Sex: Male
  Weight: 60.1 kg

DRUGS (7)
  1. CABOMETYX [Suspect]
     Active Substance: CABOZANTINIB S-MALATE
     Indication: Renal cell carcinoma
     Dosage: 60 MG, QD
     Route: 048
     Dates: start: 20221026, end: 20221120
  2. CABOMETYX [Suspect]
     Active Substance: CABOZANTINIB S-MALATE
     Dosage: 40 MG, QD
     Route: 048
     Dates: start: 20221201, end: 20230108
  3. CABOMETYX [Suspect]
     Active Substance: CABOZANTINIB S-MALATE
     Dosage: 40 MG, QD
     Route: 048
     Dates: start: 20230113, end: 20230210
  4. EVENITY [Concomitant]
     Active Substance: ROMOSOZUMAB-AQQG
     Indication: Bone non-union
     Dosage: UNK
     Route: 050
     Dates: start: 20220225, end: 20230113
  5. OXYCODONE [Concomitant]
     Active Substance: OXYCODONE
     Indication: Cancer pain
     Dosage: UNK
     Route: 048
     Dates: start: 20210615
  6. NAPROXEN SODIUM [Concomitant]
     Active Substance: NAPROXEN\NAPROXEN SODIUM
     Indication: Cancer pain
     Dosage: UNK
     Route: 048
     Dates: start: 20210615
  7. CALONAL [Concomitant]
     Active Substance: ACETAMINOPHEN
     Indication: Cancer pain
     Dosage: UNK
     Route: 048
     Dates: start: 20210601

REACTIONS (1)
  - Renal cell carcinoma [Fatal]
